FAERS Safety Report 24565533 (Version 1)
Quarter: 2024Q4

REPORT INFORMATION
  Report Type: Spontaneous
  Country: FR (occurrence: FR)
  Receive Date: 20241030
  Receipt Date: 20241030
  Transmission Date: 20250115
  Serious: Yes (Other)
  Sender: RANBAXY
  Company Number: FR-SUN PHARMACEUTICAL INDUSTRIES LTD-2024RR-476482

PATIENT
  Age: 32 Year
  Sex: Female
  Weight: 120 kg

DRUGS (11)
  1. MORPHINE [Suspect]
     Active Substance: MORPHINE
     Indication: Pain
     Dosage: 3 MILLIGRAM TOTAL 1
     Route: 008
     Dates: start: 20230605, end: 20230605
  2. KETOPROFEN [Suspect]
     Active Substance: KETOPROFEN
     Indication: Pain
     Dosage: 200 MILLIGRAM, DAILY
     Route: 048
     Dates: start: 20230605, end: 20230607
  3. LOVENOX [Suspect]
     Active Substance: ENOXAPARIN SODIUM
     Indication: Thrombosis prophylaxis
     Dosage: 4000 INTERNATIONAL UNIT, DAILY
     Route: 058
     Dates: start: 20230605, end: 20230605
  4. KETOPROFEN [Suspect]
     Active Substance: KETOPROFEN
     Indication: Pain
     Dosage: 100 MILLIGRAM TOTAL 1
     Route: 040
     Dates: start: 20230605, end: 20230605
  5. ACETAMINOPHEN [Suspect]
     Active Substance: ACETAMINOPHEN
     Indication: Pain
     Dosage: 1 GRAM TOTAL 1
     Route: 040
     Dates: start: 20230605, end: 20230605
  6. CEFAZOLIN SODIUM [Suspect]
     Active Substance: CEFAZOLIN SODIUM
     Indication: Antibiotic prophylaxis
     Dosage: 4 GRAM TOTAL 1
     Route: 040
     Dates: start: 20230605, end: 20230605
  7. SUFENTANIL [Suspect]
     Active Substance: SUFENTANIL
     Indication: Nerve block
     Dosage: 0.5 MILLILITER TOTAL 1
     Route: 008
     Dates: start: 20230604, end: 20230604
  8. ROPIVACAINE [Suspect]
     Active Substance: ROPIVACAINE
     Indication: Nerve block
     Dosage: 1.5 MILLILITER TOTAL 1
     Route: 008
     Dates: start: 20230604, end: 20230604
  9. LIDOCAINE [Suspect]
     Active Substance: LIDOCAINE
     Indication: Local anaesthesia
     Dosage: 4 MILLILITER TOTAL 1
     Route: 058
     Dates: start: 20230604, end: 20230604
  10. PHLOROGLUCINOL [Suspect]
     Active Substance: PHLOROGLUCINOL
     Indication: Pain
     Dosage: 80 MILLIGRAM TOTAL 1
     Route: 040
     Dates: start: 20230604, end: 20230604
  11. DOLIPRANE [Suspect]
     Active Substance: ACETAMINOPHEN
     Indication: Pain
     Dosage: 1 GRAM TOTAL 1
     Route: 048
     Dates: start: 20230603, end: 20230603

REACTIONS (1)
  - Pruritus [Recovered/Resolved]

NARRATIVE: CASE EVENT DATE: 20230605
